FAERS Safety Report 21211256 (Version 1)
Quarter: 2022Q3

REPORT INFORMATION
  Report Type: Spontaneous
  Country: US (occurrence: None)
  Receive Date: 20220812
  Receipt Date: 20220812
  Transmission Date: 20221027
  Serious: No
  Sender: FDA-Public Use
  Company Number: None

PATIENT
  Age: 49 Year
  Sex: Female
  Weight: 81.19 kg

DRUGS (1)
  1. ENBREL [Suspect]
     Active Substance: ETANERCEPT
     Indication: Rheumatoid arthritis
     Dosage: INJECT 50MG  SUBCUTANEOUSLY ONCE WEEKLY  AS DIRECTED
     Route: 058
     Dates: start: 202205

REACTIONS (1)
  - Abdominal pain upper [None]
